FAERS Safety Report 4571978-0 (Version None)
Quarter: 2005Q1

REPORT INFORMATION
  Report Type: 
  Country: None (occurrence: None)
  Receive Date: 20050202
  Receipt Date: 20050113
  Transmission Date: 20050727
  Serious: Yes (Other)
  Sender: FDA-Public Use
  Company Number: US_0501110374

PATIENT
  Age: 47 Year
  Sex: Male
  Weight: 124 kg

DRUGS (14)
  1. ZYPREXA-ORAL (OLANZAPINE0 [Suspect]
     Indication: SCHIZOAFFECTIVE DISORDER
     Dosage: 15 MG/1 AT BEDTIME
     Dates: start: 19980924, end: 20040501
  2. BUPROPION HYDROCHLORIDE [Concomitant]
  3. LITHIUM CARBONATE [Concomitant]
  4. THIOTHIXINE [Concomitant]
  5. AMOXICILLIN [Concomitant]
  6. ESCITALOPRAM OXALATE [Concomitant]
  7. LAMOTRIGINE [Concomitant]
  8. ESOMEPRAZOLE MAGNESIUM [Concomitant]
  9. PANTOPRAZOLE [Concomitant]
  10. ROSUVASTATIN CALCIUM [Concomitant]
  11. HYDROCODONE [Concomitant]
  12. HALOPERIDOL DECANOATE [Concomitant]
  13. LANSOPRAZOLE [Concomitant]
  14. ROFECOXIB [Concomitant]

REACTIONS (21)
  - ANAEMIA [None]
  - BACK PAIN [None]
  - BLOOD GLUCOSE INCREASED [None]
  - BLOOD TRIGLYCERIDES INCREASED [None]
  - CHOLELITHIASIS [None]
  - CONDITION AGGRAVATED [None]
  - CORNEAL REFLEX DECREASED [None]
  - DIABETES MELLITUS INSULIN-DEPENDENT [None]
  - DIABETIC KETOACIDOSIS [None]
  - EMPYEMA [None]
  - EYE DISORDER [None]
  - HALLUCINATION, AUDITORY [None]
  - HYPERCHOLESTEROLAEMIA [None]
  - ILLUSION [None]
  - PSEUDOMONAS INFECTION [None]
  - PYREXIA [None]
  - SEPSIS [None]
  - SLEEP APNOEA SYNDROME [None]
  - SPUTUM CULTURE POSITIVE [None]
  - STAPHYLOCOCCAL INFECTION [None]
  - WEIGHT INCREASED [None]
